FAERS Safety Report 5148654-9 (Version None)
Quarter: 2006Q4

REPORT INFORMATION
  Report Type: 
  Country: None (occurrence: None)
  Receive Date: 20061107
  Receipt Date: 20061101
  Transmission Date: 20070319
  Serious: Yes (Hospitalization)
  Sender: FDA-Public Use
  Company Number: 149336USA

PATIENT
  Age: 17 Year
  Sex: Female

DRUGS (1)
  1. SIMVASTATIN [Suspect]
     Indication: TYPE IIA HYPERLIPIDAEMIA
     Dosage: ORAL
     Route: 048
     Dates: start: 19940101

REACTIONS (2)
  - CHOLECYSTITIS ACUTE [None]
  - DRUG INTOLERANCE [None]
